FAERS Safety Report 5815502-0 (Version None)
Quarter: 2008Q3

REPORT INFORMATION
  Report Type: 
  Country: None (occurrence: None)
  Receive Date: 20080718
  Receipt Date: 20080707
  Transmission Date: 20090109
  Serious: Yes (Hospitalization, Other)
  Sender: FDA-Public Use
  Company Number: FR-PFIZER INC-2008057233

PATIENT
  Age: 64 Year
  Sex: Male

DRUGS (3)
  1. XALATAN [Suspect]
  2. AZOPT [Concomitant]
  3. CORTICOSTEROIDS [Concomitant]

REACTIONS (3)
  - FATIGUE [None]
  - INTRAOCULAR PRESSURE TEST ABNORMAL [None]
  - PULMONARY EMBOLISM [None]
